FAERS Safety Report 9114709 (Version 1)
Quarter: 2013Q1

REPORT INFORMATION
  Report Type: Report from Study
  Country: US (occurrence: US)
  Receive Date: 20130129
  Receipt Date: 20130129
  Transmission Date: 20140127
  Serious: No
  Sender: FDA-Public Use
  Company Number: US-ABBOTT-12P-163-0941962-00

PATIENT
  Age: 44 Year
  Sex: Female

DRUGS (5)
  1. HUMIRA 40 MG/0.8 ML PEN [Suspect]
     Indication: CROHN^S DISEASE
     Dates: start: 20110820
  2. HUMIRA 40 MG/0.8 ML PEN [Suspect]
     Dates: start: 201201
  3. OXYCONTIN [Concomitant]
     Indication: PAIN
     Dosage: ONLY TOOK THE EDGE OFF
  4. VITAMIN B12 [Concomitant]
     Indication: PRODUCT USED FOR UNKNOWN INDICATION
     Route: 050
  5. LEVSIN [Concomitant]
     Indication: MUSCLE SPASMS

REACTIONS (1)
  - Injection site pain [Recovering/Resolving]
